FAERS Safety Report 16834448 (Version 1)
Quarter: 2019Q3

REPORT INFORMATION
  Report Type: Spontaneous
  Country: US (occurrence: US)
  Receive Date: 20190920
  Receipt Date: 20190920
  Transmission Date: 20191005
  Serious: No
  Sender: FDA-Public Use
  Company Number: US-BAYER-2019-162145

PATIENT
  Age: 85 Year
  Sex: Female
  Weight: 43 kg

DRUGS (4)
  1. SERTRALINE [Concomitant]
     Active Substance: SERTRALINE HYDROCHLORIDE
  2. LIBRIUM [Concomitant]
     Active Substance: CHLORDIAZEPOXIDE HYDROCHLORIDE
  3. FLONASE [Concomitant]
     Active Substance: FLUTICASONE PROPIONATE
  4. CLARITIN [Suspect]
     Active Substance: LORATADINE
     Indication: ARTHROPOD STING
     Dosage: 1 DF, QD
     Route: 048
     Dates: start: 20190902, end: 20190902

REACTIONS (4)
  - Headache [Unknown]
  - Rhinorrhoea [Unknown]
  - Somnolence [Unknown]
  - Product use in unapproved indication [Unknown]

NARRATIVE: CASE EVENT DATE: 20190902
